FAERS Safety Report 6599386-1 (Version None)
Quarter: 2010Q1

REPORT INFORMATION
  Report Type: 
  Country: None (occurrence: None)
  Receive Date: 20100224
  Receipt Date: 20100104
  Transmission Date: 20100710
  Serious: No
  Sender: FDA-Public Use
  Company Number: A0834970A

PATIENT
  Sex: Female

DRUGS (1)
  1. ARZERRA [Suspect]
     Dosage: 300MG SINGLE DOSE
     Route: 042
     Dates: start: 20091209, end: 20091209

REACTIONS (2)
  - BACK PAIN [None]
  - PRURITUS [None]
